FAERS Safety Report 11238283 (Version 1)
Quarter: 2015Q3

REPORT INFORMATION
  Report Type: Spontaneous
  Country: US (occurrence: US)
  Receive Date: 20150704
  Receipt Date: 20150704
  Transmission Date: 20151125
  Serious: No
  Sender: FDA-Public Use
  Company Number: US-009507513-1506USA011224

PATIENT
  Sex: Male

DRUGS (4)
  1. GLIMEPRID [Suspect]
     Active Substance: GLIMEPIRIDE
  2. TOUJEO [Suspect]
     Active Substance: INSULIN GLARGINE
  3. JANUMET [Suspect]
     Active Substance: METFORMIN HYDROCHLORIDE\SITAGLIPTIN PHOSPHATE
     Route: 048
  4. INVOKANA [Suspect]
     Active Substance: CANAGLIFLOZIN

REACTIONS (1)
  - Hyperglycaemia [Unknown]
